APPROVED DRUG PRODUCT: LEVETIRACETAM
Active Ingredient: LEVETIRACETAM
Strength: 1GM
Dosage Form/Route: TABLET;ORAL
Application: A205102 | Product #003
Applicant: CHINA RESOURCES SAIKE PHARMACEUTICAL CO LTD
Approved: Dec 16, 2015 | RLD: No | RS: No | Type: DISCN